FAERS Safety Report 9839964 (Version 1)
Quarter: 2014Q1

REPORT INFORMATION
  Report Type: Spontaneous
  Country: US (occurrence: None)
  Receive Date: 20140117
  Receipt Date: 20140117
  Transmission Date: 20141002
  Serious: Yes (Hospitalization)
  Sender: FDA-Public Use
  Company Number: None

PATIENT
  Age: 63 Year
  Sex: Male
  Weight: 67.1 kg

DRUGS (4)
  1. METHOTREXATE [Suspect]
  2. PROCARBAZINE [Suspect]
  3. RITUXIMAB [Suspect]
  4. VINCRISTINE SULFATE [Suspect]

REACTIONS (5)
  - Dyspnoea [None]
  - Cough [None]
  - Pyrexia [None]
  - Bronchitis [None]
  - Anaemia [None]
